FAERS Safety Report 10688333 (Version 1)
Quarter: 2015Q1

REPORT INFORMATION
  Report Type: Spontaneous
  Country: US (occurrence: US)
  Receive Date: 20150102
  Receipt Date: 20150102
  Transmission Date: 20150720
  Serious: No
  Sender: FDA-Public Use
  Company Number: US-009507513-1412USA008644

PATIENT
  Age: 51 Year
  Sex: Female

DRUGS (1)
  1. CORICIDIN HBP COLD AND FLU [Suspect]
     Active Substance: ACETAMINOPHEN\CHLORPHENIRAMINE MALEATE
     Indication: PRODUCT USED FOR UNKNOWN INDICATION
     Dosage: UNK UNK, ONCE
     Route: 048

REACTIONS (4)
  - Malaise [Unknown]
  - Dizziness [Unknown]
  - Feeling abnormal [Unknown]
  - Unevaluable event [Unknown]
